FAERS Safety Report 7608818-9 (Version None)
Quarter: 2011Q3

REPORT INFORMATION
  Report Type: 
  Country: None (occurrence: None)
  Receive Date: 20110713
  Receipt Date: 20110713
  Transmission Date: 20111222
  Serious: No
  Sender: FDA-Public Use
  Company Number: None

PATIENT
  Sex: Female
  Weight: 70.3075 kg

DRUGS (1)
  1. CIPRO [Suspect]
     Indication: KIDNEY INFECTION
     Dosage: 1 TAB 1 A DAY
     Dates: start: 20110418, end: 20110421

REACTIONS (1)
  - TENDONITIS [None]
